FAERS Safety Report 19463459 (Version 1)
Quarter: 2021Q2

REPORT INFORMATION
  Report Type: Spontaneous
  Country: GB (occurrence: GB)
  Receive Date: 20210625
  Receipt Date: 20210625
  Transmission Date: 20210717
  Serious: Yes (Hospitalization, Other)
  Sender: FDA-Public Use
  Company Number: GB-PFIZER INC-2021693060

PATIENT
  Age: 76 Year
  Sex: Female

DRUGS (5)
  1. ETOPOSIDE. [Suspect]
     Active Substance: ETOPOSIDE
     Indication: ANGIOIMMUNOBLASTIC T-CELL LYMPHOMA
     Dosage: UNK UNK, CYCLIC (2 +3) (CHOP X CYCLE 1, CHOEP CYCLE2 + 3, CHOP CYCLES 4?6)
  2. PREDNISONE. [Suspect]
     Active Substance: PREDNISONE
     Indication: ANGIOIMMUNOBLASTIC T-CELL LYMPHOMA
     Dosage: CHOP/CHOEP (CHOP X CYCLE 1, CHOEP CYCLE2 + 3, CHOP CYCLES 4?6)
  3. DOXORUBICIN [Suspect]
     Active Substance: DOXORUBICIN
     Indication: ANGIOIMMUNOBLASTIC T-CELL LYMPHOMA
     Dosage: CHOP/CHOEP, CYCLIC (CHOP X CYCLE 1, CHOEP CYCLE2 + 3, CHOP CYCLES 4?6)
  4. CYCLOPHOSPHAMIDE. [Suspect]
     Active Substance: CYCLOPHOSPHAMIDE
     Indication: ANGIOIMMUNOBLASTIC T-CELL LYMPHOMA
     Dosage: UNK, CYCLIC (CHOP X CYCLE 1, CHOEP CYCLE2 + 3, CHOP CYCLES 4?6)
  5. VINCRISTINE SULFATE. [Suspect]
     Active Substance: VINCRISTINE SULFATE
     Indication: ANGIOIMMUNOBLASTIC T-CELL LYMPHOMA
     Dosage: CHOP/CHOEP, CYCLIC (CHOP X CYCLE 1, CHOEP CYCLE2 + 3, CHOP CYCLES 4?6)

REACTIONS (6)
  - Acute kidney injury [Unknown]
  - Epistaxis [Unknown]
  - Neutropenic sepsis [Unknown]
  - Transfusion-related circulatory overload [Unknown]
  - Traumatic haematoma [Unknown]
  - Fall [Unknown]
